FAERS Safety Report 18261519 (Version 1)
Quarter: 2020Q3

REPORT INFORMATION
  Report Type: Spontaneous
  Country: US (occurrence: US)
  Receive Date: 20200914
  Receipt Date: 20200914
  Transmission Date: 20201103
  Serious: Yes (Other)
  Sender: FDA-Public Use
  Company Number: US-MYLANLABS-2020M1077292

PATIENT
  Sex: Male

DRUGS (1)
  1. ARMODAFINIL. [Suspect]
     Active Substance: ARMODAFINIL
     Indication: NARCOLEPSY
     Dosage: 250 MILLIGRAM, QD,1 TABLET ONCE DAILY
     Route: 048

REACTIONS (3)
  - Product complaint [Unknown]
  - Drug ineffective [Not Recovered/Not Resolved]
  - Extra dose administered [Not Recovered/Not Resolved]

NARRATIVE: CASE EVENT DATE: 2020
